FAERS Safety Report 18010312 (Version 2)
Quarter: 2020Q3

REPORT INFORMATION
  Report Type: Spontaneous
  Country: DE (occurrence: DE)
  Receive Date: 20200710
  Receipt Date: 20200723
  Transmission Date: 20201103
  Serious: Yes (Other)
  Sender: FDA-Public Use
  Company Number: DE-BAUSCH-BL-2020-018995

PATIENT
  Sex: Male

DRUGS (2)
  1. GENT?OPHTAL AUGENTROPFEN [Suspect]
     Active Substance: GENTAMICIN SULFATE
     Indication: OFF LABEL USE
  2. GENT?OPHTAL AUGENTROPFEN [Suspect]
     Active Substance: GENTAMICIN SULFATE
     Indication: SINUSITIS
     Dosage: 4 TIMES TOTAL USED

REACTIONS (5)
  - Hypoacusis [Recovering/Resolving]
  - Otitis media [Recovering/Resolving]
  - Tinnitus [Recovering/Resolving]
  - Off label use [Unknown]
  - Eustachian tube disorder [Recovering/Resolving]
